FAERS Safety Report 25531657 (Version 3)
Quarter: 2025Q4

REPORT INFORMATION
  Report Type: Report from Study
  Country: EU (occurrence: EU)
  Receive Date: 20250709
  Receipt Date: 20251216
  Transmission Date: 20260118
  Serious: Yes (Other)
  Sender: ABBVIE
  Company Number: EU-ABBVIE-6359029

PATIENT
  Age: 69 Year
  Sex: Male
  Weight: 95 kg

DRUGS (3)
  1. CARBIDOPA\LEVODOPA [Suspect]
     Active Substance: CARBIDOPA\LEVODOPA
     Indication: Parkinson^s disease
     Dosage: MORNING DOSE: 7.0ML; CONTINUOUS RATE: 3.9ML/H; EXTRA DOSE: 3.9ML (24-HOUR ADMINISTRATION)
     Route: 050
     Dates: start: 20211102
  2. CARBIDOPA\LEVODOPA [Suspect]
     Active Substance: CARBIDOPA\LEVODOPA
     Dosage: EXTRA DOSE CHANGED TO EVERY 8 HOURS DOSE REDUCED
     Route: 050
  3. CARBIDOPA\LEVODOPA [Suspect]
     Active Substance: CARBIDOPA\LEVODOPA
     Dosage: THE ADMINISTRATION TIME OF EXTRA DOSE WAS CHANGED TO EVERY FOUR HOURS
     Route: 050

REACTIONS (3)
  - Drug abuse [Recovered/Resolved]
  - Hyperkinesia [Not Recovered/Not Resolved]
  - On and off phenomenon [Unknown]

NARRATIVE: CASE EVENT DATE: 20250706
